FAERS Safety Report 11089821 (Version 1)
Quarter: 2015Q2

REPORT INFORMATION
  Report Type: Spontaneous
  Country: US (occurrence: None)
  Receive Date: 20150504
  Receipt Date: 20150504
  Transmission Date: 20150821
  Serious: Yes (Other)
  Sender: FDA-Public Use
  Company Number: None

PATIENT
  Age: 54 Year
  Sex: Female

DRUGS (1)
  1. TECFIDERA [Suspect]
     Active Substance: DIMETHYL FUMARATE
     Indication: MULTIPLE SCLEROSIS
     Dosage: 120MG/240MG 120MG BID 7DAYS, THEN BY MOUTH
     Route: 048
     Dates: start: 20150409

REACTIONS (5)
  - Peripheral swelling [None]
  - Fatigue [None]
  - Fluid retention [None]
  - Urine output decreased [None]
  - Depressed level of consciousness [None]

NARRATIVE: CASE EVENT DATE: 201504
